FAERS Safety Report 17353980 (Version 1)
Quarter: 2020Q1

REPORT INFORMATION
  Report Type: Spontaneous
  Country: US (occurrence: US)
  Receive Date: 20200131
  Receipt Date: 20200131
  Transmission Date: 20200409
  Serious: Yes (Other)
  Sender: FDA-Public Use
  Company Number: US-GILEAD-2020-0448732

PATIENT
  Sex: Male

DRUGS (1)
  1. ATRIPLA [Suspect]
     Active Substance: EFAVIRENZ\EMTRICITABINE\TENOFOVIR DISOPROXIL FUMARATE
     Indication: HIV INFECTION
     Dosage: UNK
     Route: 048
     Dates: start: 2005

REACTIONS (10)
  - Emotional distress [Not Recovered/Not Resolved]
  - Osteoporosis [Unknown]
  - Renal injury [Not Recovered/Not Resolved]
  - Anxiety [Not Recovered/Not Resolved]
  - Foot fracture [Unknown]
  - Rib fracture [Unknown]
  - Economic problem [Not Recovered/Not Resolved]
  - Pain [Not Recovered/Not Resolved]
  - Wrist fracture [Unknown]
  - Anhedonia [Not Recovered/Not Resolved]
